FAERS Safety Report 5415369-9 (Version None)
Quarter: 2007Q3

REPORT INFORMATION
  Report Type: 
  Country: None (occurrence: None)
  Receive Date: 20070814
  Receipt Date: 20070814
  Transmission Date: 20080115
  Serious: Yes (Hospitalization)
  Sender: FDA-Public Use
  Company Number: None

PATIENT
  Age: 70 Year
  Sex: Female
  Weight: 50.8029 kg

DRUGS (6)
  1. OXALIPLATIN [Suspect]
     Indication: CARCINOID TUMOUR OF THE APPENDIX
     Dosage: 365MG INTRAPERITONEAL
     Route: 033
     Dates: start: 20070616
  2. LISINOPRIL [Concomitant]
  3. FOSAMAX [Concomitant]
  4. CENTRUM [Concomitant]
  5. ASPIRIN [Concomitant]
  6. FOLIC ACID [Concomitant]

REACTIONS (14)
  - BILIRUBIN CONJUGATED INCREASED [None]
  - CULTURE POSITIVE [None]
  - DRUG TOXICITY [None]
  - ENTEROCOCCAL INFECTION [None]
  - ESCHERICHIA INFECTION [None]
  - GRANULOCYTES ABNORMAL [None]
  - HAEMATOMA INFECTION [None]
  - HAEMOGLOBIN DECREASED [None]
  - JAUNDICE [None]
  - LEUKOCYTOSIS [None]
  - NEUTROPHIL COUNT ABNORMAL [None]
  - PATHOGEN RESISTANCE [None]
  - PELVIC HAEMATOMA [None]
  - PLATELET COUNT ABNORMAL [None]
